FAERS Safety Report 18115671 (Version 1)
Quarter: 2020Q3

REPORT INFORMATION
  Report Type: Spontaneous
  Country: US (occurrence: US)
  Receive Date: 20200805
  Receipt Date: 20200805
  Transmission Date: 20201103
  Serious: Yes (Hospitalization, Other)
  Sender: FDA-Public Use
  Company Number: US-PFIZER INC-2020294846

PATIENT
  Age: 1 Day
  Sex: Male

DRUGS (4)
  1. PROGESTERONE. [Suspect]
     Active Substance: PROGESTERONE
     Dosage: UNK (1 WEEK?12 WEEKS)
     Route: 064
  2. LEXAPRO [Suspect]
     Active Substance: ESCITALOPRAM OXALATE
     Dosage: UNK, (0 WEEKS PREGNANCY UP TO DELIVERY)
     Route: 064
  3. ABILIFY [Suspect]
     Active Substance: ARIPIPRAZOLE
     Dosage: UNK (2.5 MG AT 0 WEEKS PREGNANCY UP TO DELIVERY )
     Route: 064
  4. ESTRADIOL. [Suspect]
     Active Substance: ESTRADIOL
     Dosage: UNK, (1 WEEK ?12 WEEKS)
     Route: 064

REACTIONS (5)
  - Premature baby [Recovered/Resolved]
  - Neonatal respiratory distress [Recovered/Resolved]
  - Neonatal tachycardia [Recovered/Resolved]
  - Foetal growth restriction [Recovered/Resolved]
  - Maternal exposure during pregnancy [Recovered/Resolved]

NARRATIVE: CASE EVENT DATE: 20170811
